FAERS Safety Report 7685354-5 (Version None)
Quarter: 2011Q3

REPORT INFORMATION
  Report Type: 
  Country: None (occurrence: None)
  Receive Date: 20110801
  Receipt Date: 20110722
  Transmission Date: 20111222
  Serious: Yes (Hospitalization)
  Sender: FDA-Public Use
  Company Number: 2011029247

PATIENT
  Age: 72 Year
  Sex: Female

DRUGS (5)
  1. TRAMADOL HCL [Concomitant]
  2. TORSEMIDE [Concomitant]
  3. PREDNISOLONE [Concomitant]
  4. PRIVIGEN [Suspect]
     Indication: SECONDARY IMMUNODEFICIENCY
     Dosage: 10 G
     Route: 042
     Dates: start: 20110330, end: 20110330
  5. LEVOTHYROXINE SODIUM [Concomitant]

REACTIONS (2)
  - GENERAL PHYSICAL HEALTH DETERIORATION [None]
  - TACHYCARDIA [None]
